FAERS Safety Report 4804640-7 (Version None)
Quarter: 2005Q4

REPORT INFORMATION
  Report Type: 
  Country: None (occurrence: None)
  Receive Date: 20051014
  Receipt Date: 20051003
  Transmission Date: 20060501
  Serious: Yes (Other)
  Sender: FDA-Public Use
  Company Number: 2005S1000207

PATIENT

DRUGS (2)
  1. CUBICIN [Suspect]
     Indication: OSTEOMYELITIS
  2. VANCOMYCIN [Concomitant]

REACTIONS (1)
  - RENAL TUBULAR NECROSIS [None]
